FAERS Safety Report 6616456-X (Version None)
Quarter: 2010Q1

REPORT INFORMATION
  Report Type: 
  Country: None (occurrence: None)
  Receive Date: 20100305
  Receipt Date: 20100223
  Transmission Date: 20100710
  Serious: Yes (Hospitalization, Other)
  Sender: FDA-Public Use
  Company Number: PHHY2010US04403

PATIENT
  Sex: Male
  Weight: 73.016 kg

DRUGS (13)
  1. DIOVAN [Suspect]
     Indication: HYPERTENSION
     Dosage: 80 MG, QD
     Route: 048
     Dates: end: 20100115
  2. MELOXICAM [Concomitant]
     Dosage: 7.5 MG, QD
  3. METOPROLOL TARTRATE [Concomitant]
     Dosage: 25 MG, TID
     Route: 048
  4. PLAVIX [Concomitant]
     Dosage: 75 MG, QD
  5. PRAZOSIN [Concomitant]
     Dosage: 5 MG, QD
  6. CENTRUM SILVER [Concomitant]
     Dosage: UNK
  7. VITAMIN B-12 [Concomitant]
     Dosage: TWICE IN AMONTH
  8. VITAMIN D [Concomitant]
     Dosage: UNK, UNK
  9. TERAZOSIN HCL [Concomitant]
     Dosage: 5 MG, QD
     Route: 048
  10. ASPIRIN [Concomitant]
     Dosage: 81 MG, QD
     Route: 048
  11. DIPHENHIST [Concomitant]
     Dosage: 25 MG, QD
     Route: 048
  12. FISH OIL [Concomitant]
     Dosage: 1000 MG, QD
  13. TYLENOL-500 [Concomitant]
     Dosage: UNK, UNK

REACTIONS (7)
  - BLOOD PRESSURE INADEQUATELY CONTROLLED [None]
  - BLOOD PRESSURE INCREASED [None]
  - FALL [None]
  - HYDROCEPHALUS [None]
  - PNEUMONIA [None]
  - VENTRICULO-PERITONEAL SHUNT [None]
  - WEIGHT DECREASED [None]
